FAERS Safety Report 10722304 (Version 1)
Quarter: 2015Q1

REPORT INFORMATION
  Report Type: Spontaneous
  Country: US (occurrence: US)
  Receive Date: 20150119
  Receipt Date: 20150119
  Transmission Date: 20150721
  Serious: No
  Sender: FDA-Public Use
  Company Number: US-GLAXOSMITHKLINE-US2014GSK047308

PATIENT
  Sex: Male

DRUGS (6)
  1. ZANTAC [Concomitant]
     Active Substance: RANITIDINE HYDROCHLORIDE
     Dosage: 150 MG, U
  2. TOPROL XL [Concomitant]
     Active Substance: METOPROLOL SUCCINATE
  3. SALMON OIL [Concomitant]
     Active Substance: FISH OIL
  4. MEKINIST [Suspect]
     Active Substance: TRAMETINIB DIMETHYL SULFOXIDE
     Indication: MALIGNANT MELANOMA
     Dosage: 0.5 MG, QD
     Route: 048
     Dates: start: 20140516
  5. ECOTRIN [Concomitant]
     Active Substance: ASPIRIN
     Dosage: 325 MG, U
  6. DIOVAN [Concomitant]
     Active Substance: VALSARTAN
     Dosage: 160 MG, U

REACTIONS (1)
  - Rash [Unknown]
